FAERS Safety Report 8326710-1 (Version None)
Quarter: 2012Q2

REPORT INFORMATION
  Report Type: 
  Country: None (occurrence: None)
  Receive Date: 20120501
  Receipt Date: 20120206
  Transmission Date: 20120825
  Serious: Yes (Other)
  Sender: FDA-Public Use
  Company Number: CHPA2012US009405

PATIENT
  Sex: Male

DRUGS (3)
  1. ASPIRIN [Suspect]
     Dosage: UNK, DAILY
  2. PLAVIX [Suspect]
     Indication: MYOCARDIAL INFARCTION
     Dosage: UNK, DAILY
     Route: 048
     Dates: start: 20040101
  3. EXCEDRIN EXTRA STRENGTH TABLETS [Suspect]
     Indication: HEADACHE
     Dosage: UNK, UNK
     Route: 048

REACTIONS (5)
  - HYPERTENSION [None]
  - UNDERDOSE [None]
  - RECTAL FISSURE [None]
  - RECTAL HAEMORRHAGE [None]
  - MYOCARDIAL INFARCTION [None]
